FAERS Safety Report 4300607-6 (Version None)
Quarter: 2004Q1

REPORT INFORMATION
  Report Type: 
  Country: None (occurrence: None)
  Receive Date: 20040220
  Receipt Date: 20040210
  Transmission Date: 20041129
  Serious: Yes (Other)
  Sender: FDA-Public Use
  Company Number: JP-ROCHE-359045

PATIENT
  Age: 79 Year
  Sex: Female

DRUGS (1)
  1. TAMIFLU [Suspect]
     Dosage: 7 CAPSULES IN TOTAL.
     Route: 048
     Dates: start: 20040204, end: 20040207

REACTIONS (1)
  - DELUSION [None]
